FAERS Safety Report 25079604 (Version 1)
Quarter: 2025Q1

REPORT INFORMATION
  Report Type: Spontaneous
  Country: ES (occurrence: ES)
  Receive Date: 20250314
  Receipt Date: 20250314
  Transmission Date: 20250409
  Serious: No
  Sender: TOLMAR
  Company Number: ES-RECGATEWAY-2025001181

PATIENT
  Sex: Male

DRUGS (1)
  1. ELIGARD [Suspect]
     Active Substance: LEUPROLIDE ACETATE
     Indication: Product used for unknown indication
     Dosage: 45 MILLIGRAM, Q 6 MONTH

REACTIONS (3)
  - Intercepted product preparation error [Unknown]
  - Product reconstitution quality issue [Unknown]
  - Device defective [Unknown]
